FAERS Safety Report 22184674 (Version 4)
Quarter: 2023Q2

REPORT INFORMATION
  Report Type: Report from Study
  Country: DE (occurrence: None)
  Receive Date: 20230407
  Receipt Date: 20230522
  Transmission Date: 20230722
  Serious: No
  Sender: FDA-Public Use
  Company Number: DE-ROCHE-3321205

PATIENT
  Age: 59 Year
  Sex: Female
  Weight: 61 kg

DRUGS (2)
  1. EMICIZUMAB [Suspect]
     Active Substance: EMICIZUMAB
     Indication: Acquired haemophilia
     Dosage: LAST MEDICATION DATE BEFORE ONSET ON AE : 14/APR/2022?DATE OF LAST DOSE: 13/APR/2022
     Route: 058
     Dates: start: 20220413
  2. HAEMOCTIN SDH [Concomitant]
     Route: 042
     Dates: start: 20220411, end: 20220417

REACTIONS (1)
  - Superficial vein thrombosis [Recovering/Resolving]

NARRATIVE: CASE EVENT DATE: 20220414
